FAERS Safety Report 19896093 (Version 1)
Quarter: 2021Q3

REPORT INFORMATION
  Report Type: Report from Study
  Country: DE (occurrence: DE)
  Receive Date: 20210929
  Receipt Date: 20210929
  Transmission Date: 20211014
  Serious: Yes (Other)
  Sender: FDA-Public Use
  Company Number: DE-MYLANLABS-2021M1066251

PATIENT
  Age: 23 Year
  Sex: Female
  Weight: 110 kg

DRUGS (5)
  1. SATIVEX [Concomitant]
     Active Substance: NABIXIMOLS
     Dosage: UNK
     Route: 060
     Dates: start: 20190912
  2. BACLOFEN. [Concomitant]
     Active Substance: BACLOFEN
     Dosage: 10 MILLIGRAM
     Route: 048
  3. GLATIRAMER ACETATE. [Concomitant]
     Active Substance: GLATIRAMER ACETATE
     Dosage: UNK
     Dates: start: 20190830, end: 20191111
  4. FINGOLIMOD. [Suspect]
     Active Substance: FINGOLIMOD
     Indication: RELAPSING MULTIPLE SCLEROSIS
     Dosage: UNK
     Route: 048
     Dates: start: 20191118
  5. OCRELIZUMAB. [Suspect]
     Active Substance: OCRELIZUMAB
     Indication: RELAPSING MULTIPLE SCLEROSIS
     Dosage: MOST RECENT DOSE ON 29/OCT/2019
     Route: 042
     Dates: start: 20191015

REACTIONS (3)
  - Depression [Unknown]
  - Diarrhoea haemorrhagic [Recovered/Resolved]
  - Insomnia [Unknown]

NARRATIVE: CASE EVENT DATE: 20191210
